FAERS Safety Report 14359274 (Version 1)
Quarter: 2018Q1

REPORT INFORMATION
  Report Type: Spontaneous
  Country: US (occurrence: US)
  Receive Date: 20180105
  Receipt Date: 20180105
  Transmission Date: 20180509
  Serious: No
  Sender: FDA-Public Use
  Company Number: US-SA-2017SA122548

PATIENT
  Age: 78 Year
  Sex: Female

DRUGS (4)
  1. BUSCO RANITIDINE [Suspect]
     Active Substance: RANITIDINE HYDROCHLORIDE
     Indication: BARRETT^S OESOPHAGUS
     Route: 048
     Dates: start: 20170617
  2. PILOCARPINE. [Concomitant]
     Active Substance: PILOCARPINE
     Indication: SJOGREN^S SYNDROME
     Route: 048
  3. MYLANTA [Concomitant]
     Active Substance: ALUMINUM HYDROXIDE\DIMETHICONE\MAGNESIUM HYDROXIDE
     Indication: BARRETT^S OESOPHAGUS
     Route: 048
     Dates: start: 20170617
  4. RESTASIS [Concomitant]
     Active Substance: CYCLOSPORINE
     Indication: SJOGREN^S SYNDROME
     Route: 061

REACTIONS (2)
  - Off label use [Unknown]
  - Diarrhoea [Not Recovered/Not Resolved]

NARRATIVE: CASE EVENT DATE: 20170617
